FAERS Safety Report 6784422-X (Version None)
Quarter: 2010Q2

REPORT INFORMATION
  Report Type: 
  Country: None (occurrence: None)
  Receive Date: 20100520
  Receipt Date: 20090610
  Transmission Date: 20101027
  Serious: Yes (Other)
  Sender: FDA-Public Use
  Company Number: 2008057059

PATIENT
  Age: 58 Year
  Sex: Female
  Weight: 99 kg

DRUGS (7)
  1. PROVERA [Suspect]
     Indication: HORMONE REPLACEMENT THERAPY
     Dosage: ORAL
     Route: 048
     Dates: start: 19910101, end: 20020101
  2. PREMARIN [Suspect]
     Indication: HORMONE REPLACEMENT THERAPY
     Dates: start: 19910101, end: 20020101
  3. . [Concomitant]
  4. . [Concomitant]
  5. FELODIPINE [Concomitant]
  6. DIOVAN HCT [Concomitant]
  7. PINDOLOL [Concomitant]

REACTIONS (1)
  - BREAST CANCER FEMALE [None]
